FAERS Safety Report 5122534-7 (Version None)
Quarter: 2006Q4

REPORT INFORMATION
  Report Type: 
  Country: None (occurrence: None)
  Receive Date: 20061004
  Receipt Date: 20061004
  Transmission Date: 20070319
  Serious: Yes (Hospitalization)
  Sender: FDA-Public Use
  Company Number: None

PATIENT
  Age: 64 Year
  Sex: Male
  Weight: 72.1 kg

DRUGS (4)
  1. RITUXAN [Suspect]
     Dosage: 325MG, ONE DOSE, INFUSION
     Dates: start: 20060816, end: 20060816
  2. ACETAMINOPHEN [Concomitant]
  3. ACETAMINOPHEN AND CODEINE PHOSPHATE [Concomitant]
  4. ALLOPURINOL [Concomitant]

REACTIONS (1)
  - DYSPNOEA [None]
